FAERS Safety Report 5381127-7 (Version None)
Quarter: 2007Q3

REPORT INFORMATION
  Report Type: 
  Country: None (occurrence: None)
  Receive Date: 20070706
  Receipt Date: 20070625
  Transmission Date: 20080115
  Serious: Yes (Other)
  Sender: FDA-Public Use
  Company Number: FR-PFIZER INC-2007044576

PATIENT
  Sex: Male

DRUGS (8)
  1. LYRICA [Suspect]
     Indication: NEURALGIA
     Route: 048
     Dates: start: 20060801, end: 20070101
  2. KALETRA [Concomitant]
     Route: 048
  3. COMBIVIR [Concomitant]
     Route: 048
  4. TIORFAN [Concomitant]
  5. LORAZEPAM [Concomitant]
     Route: 048
  6. TRAMADOL HCL [Concomitant]
     Route: 048
  7. QUININE SULFATE [Concomitant]
  8. ALL OTHER THERAPEUTIC PRODUCTS [Concomitant]

REACTIONS (3)
  - OEDEMA [None]
  - RASH MACULO-PAPULAR [None]
  - WEIGHT INCREASED [None]
